FAERS Safety Report 4609499-9 (Version None)
Quarter: 2005Q1

REPORT INFORMATION
  Report Type: 
  Country: None (occurrence: None)
  Receive Date: 20050314
  Receipt Date: 20050314
  Transmission Date: 20050727
  Serious: Yes (Hospitalization)
  Sender: FDA-Public Use
  Company Number: None

PATIENT
  Age: 86 Year
  Sex: Male

DRUGS (7)
  1. LISINOPRIL [Suspect]
     Indication: HYPERTENSION
     Dosage: 10 MG QD
     Dates: start: 20041205
  2. SPIRONOLACTONE [Suspect]
     Indication: HYPERTENSION
     Dosage: 25 MG BID
     Dates: start: 20041205
  3. CEPLALEXIN [Concomitant]
  4. METOPRLOL [Concomitant]
  5. NPH INSULIN [Concomitant]
  6. MEGESTROL [Concomitant]
  7. RISPERDAL [Concomitant]

REACTIONS (1)
  - HYPERKALAEMIA [None]
